FAERS Safety Report 10280182 (Version 1)
Quarter: 2014Q3

REPORT INFORMATION
  Report Type: Spontaneous
  Country: IL (occurrence: None)
  Receive Date: 20140701
  Receipt Date: 20140701
  Transmission Date: 20150326
  Serious: Yes (Hospitalization, Congenital Anomaly)
  Sender: FDA-Public Use
  Company Number: 2014HINLIT0577

PATIENT
  Sex: Female

DRUGS (3)
  1. NEOMYCIN (NEOMYCIN) [Concomitant]
     Active Substance: NEOMYCIN
  2. METHYLPREDNISOLONE (METHYLPREDNISOLONE) [Concomitant]
     Active Substance: METHYLPREDNISOLONE
  3. LITHIUM [Suspect]
     Active Substance: LITHIUM CARBONATE
     Indication: BIPOLAR DISORDER
     Route: 064

REACTIONS (4)
  - Pelvi-ureteric obstruction [None]
  - Maternal drugs affecting foetus [None]
  - Congenital hydronephrosis [None]
  - Autism spectrum disorder [None]
